FAERS Safety Report 5636419-0 (Version None)
Quarter: 2008Q1

REPORT INFORMATION
  Report Type: 
  Country: None (occurrence: None)
  Receive Date: 20080225
  Receipt Date: 20071227
  Transmission Date: 20080703
  Serious: No
  Sender: FDA-Public Use
  Company Number: A0700589A

PATIENT
  Age: 72 Year
  Sex: Female

DRUGS (4)
  1. VERAMYST [Suspect]
     Dosage: 2MG PER DAY
     Route: 045
     Dates: start: 20071107, end: 20071218
  2. ADVAIR DISKUS 100/50 [Concomitant]
  3. XYZAL [Concomitant]
  4. OMEPRAZOLE [Concomitant]

REACTIONS (3)
  - DRUG INEFFECTIVE [None]
  - EYE IRRITATION [None]
  - EYE PRURITUS [None]
